FAERS Safety Report 7942899-8 (Version None)
Quarter: 2011Q4

REPORT INFORMATION
  Report Type: 
  Country: None (occurrence: None)
  Receive Date: 20111122
  Receipt Date: 20110726
  Transmission Date: 20120403
  Serious: No
  Sender: FDA-Public Use
  Company Number: PHHY2011US69026

PATIENT
  Age: 31 Year
  Sex: Female
  Weight: 99.7913 kg

DRUGS (17)
  1. GILENYA [Suspect]
     Dosage: 0.5 MG/DAILY, ORAL
     Route: 048
  2. KLONOPIN (CLONAZEPAM) TABLET, 0.5 MG [Concomitant]
  3. VITAMIN D (ERGOCALCIFEROL) CAPSULE [Concomitant]
  4. MAGNESIUM (MAGNESIUM) TABLET [Concomitant]
  5. METHADONE (METHADONE) TABLET, 5 MG [Concomitant]
  6. TRILEPTAL [Concomitant]
  7. BACLOFEN (BACLOFEN) TABLET, 20 MG [Concomitant]
  8. PROPRANOLOL [Concomitant]
  9. EFFEXOR [Concomitant]
  10. DETROL LA (TOLTERODINE L-TARTRATE) CAPSULE, 4 MG [Concomitant]
  11. ZANAFLEX (TIZANIDINE HYDROCHLORIDE) CAPSULE, 2 MG [Concomitant]
  12. NEURONTIN (GABAPENTIN) CAPSULE, 1000 MG [Concomitant]
  13. ZINC (ZINC) TABLET [Concomitant]
  14. WELLBUTRIN (BUPROPION HYDROCHLORIDE) TABLET, 100 MG [Concomitant]
  15. VITAMIN B COMPLEX CAP [Concomitant]
  16. CALCIUM CARBONATE [Concomitant]
  17. COLACE (DOCUSATE SODIUM) CAPSULE, 100 MG [Concomitant]

REACTIONS (2)
  - FATIGUE [None]
  - WEIGHT INCREASED [None]
